FAERS Safety Report 24698215 (Version 9)
Quarter: 2025Q4

REPORT INFORMATION
  Report Type: Spontaneous
  Country: US (occurrence: US)
  Receive Date: 20241204
  Receipt Date: 20251120
  Transmission Date: 20260119
  Serious: Yes (Other)
  Sender: PFIZER
  Company Number: US-PFIZER INC-PV202300031517

PATIENT
  Age: 64 Year
  Sex: Female
  Weight: 106.59 kg

DRUGS (3)
  1. BOSULIF [Suspect]
     Active Substance: BOSUTINIB MONOHYDRATE
     Indication: Chronic myeloid leukaemia
     Dosage: 300 MG
     Dates: start: 20131028
  2. BOSULIF [Suspect]
     Active Substance: BOSUTINIB MONOHYDRATE
     Dosage: 100 MG, ALTERNATE DAY (TAKE 1 TABLET BY MOUTH EVERY OTHER DAY)
     Route: 048
  3. BOSULIF [Suspect]
     Active Substance: BOSUTINIB MONOHYDRATE
     Dosage: 100 MG

REACTIONS (4)
  - Appendicectomy [Unknown]
  - Back disorder [Unknown]
  - Pleural effusion [Unknown]
  - Off label use [Unknown]
